FAERS Safety Report 18740128 (Version 1)
Quarter: 2021Q1

REPORT INFORMATION
  Report Type: Spontaneous
  Country: US (occurrence: US)
  Receive Date: 20210114
  Receipt Date: 20210114
  Transmission Date: 20210419
  Serious: Yes (Hospitalization)
  Sender: FDA-Public Use
  Company Number: None

PATIENT
  Sex: Female

DRUGS (17)
  1. GANIRELIX [Concomitant]
     Active Substance: GANIRELIX
  2. MENOPUR [Concomitant]
     Active Substance: FOLLITROPIN\LUTEINIZING HORMONE
  3. NOVAREL [Concomitant]
     Active Substance: CHORIOGONADOTROPIN ALFA
  4. LEUPROLIDE [Concomitant]
     Active Substance: LEUPROLIDE
  5. VORICONAZOLE. [Concomitant]
     Active Substance: VORICONAZOLE
     Dates: start: 20201228
  6. MEDROXYPR [Concomitant]
     Dates: start: 20210107
  7. CRESEMBA [Concomitant]
     Active Substance: ISAVUCONAZONIUM SULFATE
     Dates: start: 20210104
  8. ONDANSETRON [Concomitant]
     Active Substance: ONDANSETRON
     Dates: start: 20210106
  9. POSACONAZOLE [Concomitant]
     Active Substance: POSACONAZOLE
     Dates: start: 20210106
  10. URSODIOL. [Concomitant]
     Active Substance: URSODIOL
     Dates: start: 20210104
  11. VALACYCLOVIR [Concomitant]
     Active Substance: VALACYCLOVIR HYDROCHLORIDE
     Dates: start: 20210106
  12. CLOTRIMAZOLE. [Concomitant]
     Active Substance: CLOTRIMAZOLE
     Dates: start: 20210109
  13. LEVOFLOXACIN. [Concomitant]
     Active Substance: LEVOFLOXACIN
     Dates: start: 20210106
  14. FOLBIC [Concomitant]
     Active Substance: CYANOCOBALAMIN\FOLIC ACID\PYRIDOXINE
     Dates: start: 20210106
  15. POSACONAZOLE [Concomitant]
     Active Substance: POSACONAZOLE
     Dates: start: 20210104
  16. AMLODIPINE [Concomitant]
     Active Substance: AMLODIPINE BESYLATE
     Dates: start: 20210113
  17. FOLLISTIM [Suspect]
     Active Substance: FOLLITROPIN
     Indication: INFERTILITY FEMALE
     Route: 058
     Dates: start: 20200923

REACTIONS (2)
  - Leukaemia [None]
  - Transplant [None]
